FAERS Safety Report 15547217 (Version 4)
Quarter: 2020Q4

REPORT INFORMATION
  Report Type: Spontaneous
  Country: US (occurrence: US)
  Receive Date: 20181024
  Receipt Date: 20201023
  Transmission Date: 20210113
  Serious: Yes (Hospitalization, Other)
  Sender: FDA-Public Use
  Company Number: US-ELI_LILLY_AND_COMPANY-US201810008040

PATIENT
  Sex: Male

DRUGS (7)
  1. HUMALOG [Suspect]
     Active Substance: INSULIN LISPRO
     Dosage: UNK UNK, TID
     Route: 058
     Dates: start: 1998
  2. HUMALOG [Suspect]
     Active Substance: INSULIN LISPRO
     Dosage: 8 INTERNATIONAL UNIT, EACH EVENING
     Route: 058
  3. HUMALOG [Suspect]
     Active Substance: INSULIN LISPRO
     Indication: DIABETES MELLITUS
     Dosage: UNK UNK, TID
     Route: 058
     Dates: start: 1998
  4. LANTUS [Concomitant]
     Active Substance: INSULIN GLARGINE
     Dosage: 22 INTERNATIONAL UNIT, DAILY
     Dates: start: 2015
  5. HUMALOG [Suspect]
     Active Substance: INSULIN LISPRO
     Dosage: UNK UNK, TID
     Route: 058
  6. HUMALOG [Suspect]
     Active Substance: INSULIN LISPRO
     Dosage: 4 INTERNATIONAL UNIT, EACH MORNING
     Route: 058
  7. HUMALOG [Suspect]
     Active Substance: INSULIN LISPRO
     Dosage: 8 INTERNATIONAL UNIT, DAILY
     Route: 058

REACTIONS (12)
  - Urinary incontinence [Not Recovered/Not Resolved]
  - Eye disorder [Not Recovered/Not Resolved]
  - Incorrect dose administered [Recovered/Resolved]
  - Prostate cancer [Recovered/Resolved]
  - Chronic kidney disease [Recovering/Resolving]
  - Transient ischaemic attack [Recovering/Resolving]
  - Neoplasm malignant [Recovering/Resolving]
  - Cerebrovascular accident [Recovered/Resolved]
  - Cerebrovascular accident [Recovered/Resolved]
  - Cerebrovascular accident [Recovering/Resolving]
  - Memory impairment [Unknown]
  - Hypertension [Recovering/Resolving]

NARRATIVE: CASE EVENT DATE: 2010
